FAERS Safety Report 11484969 (Version 1)
Quarter: 2015Q3

REPORT INFORMATION
  Report Type: Spontaneous
  Country: US (occurrence: None)
  Receive Date: 20150909
  Receipt Date: 20150909
  Transmission Date: 20151125
  Serious: Yes (Hospitalization, Disabling, Other)
  Sender: FDA-Public Use
  Company Number: None

PATIENT
  Age: 51 Year
  Sex: Female
  Weight: 57.61 kg

DRUGS (5)
  1. AVAR [Concomitant]
     Active Substance: SULFACETAMIDE SODIUM\SULFUR
  2. LORATADINE. [Concomitant]
     Active Substance: LORATADINE
  3. VENTOLIN HFA [Concomitant]
     Active Substance: ALBUTEROL SULFATE
  4. SPIRIVA [Concomitant]
     Active Substance: TIOTROPIUM BROMIDE MONOHYDRATE
  5. FLUTICASONE PROPIONATE NASAL SPRAY [Suspect]
     Active Substance: FLUTICASONE PROPIONATE
     Indication: MULTIPLE ALLERGIES
     Dosage: 2 SPRAYS EACH NOSTRIL
     Route: 055
     Dates: start: 20150512, end: 20150512

REACTIONS (1)
  - Vocal cord paralysis [None]

NARRATIVE: CASE EVENT DATE: 20150512
